FAERS Safety Report 9917150 (Version 1)
Quarter: 2014Q1

REPORT INFORMATION
  Report Type: Spontaneous
  Country: IT (occurrence: IT)
  Receive Date: 20140221
  Receipt Date: 20140221
  Transmission Date: 20141002
  Serious: Yes (Hospitalization)
  Sender: FDA-Public Use
  Company Number: IT-ACTAVIS-2014-02704

PATIENT
  Age: 49 Year
  Sex: Female

DRUGS (4)
  1. IRINOTECAN (UNKNOWN) [Suspect]
     Indication: COLON CANCER METASTATIC
     Dosage: 316 MG, CYCLICAL
     Route: 042
     Dates: start: 20130717, end: 20140108
  2. FLUOROURACIL (UNKNOWN) [Suspect]
     Indication: COLON CANCER METASTATIC
     Dosage: 2800 MG, CYCLICAL
     Route: 042
     Dates: start: 20130717, end: 20140108
  3. AVASTIN /00848101/ [Suspect]
     Indication: COLON CANCER METASTATIC
     Dosage: 500 MG, CYCLICAL
     Route: 042
     Dates: start: 20130717, end: 20140108
  4. EUTIROX [Concomitant]
     Indication: PRODUCT USED FOR UNKNOWN INDICATION
     Route: 065

REACTIONS (1)
  - Anaemia [Recovering/Resolving]
